FAERS Safety Report 10519687 (Version 1)
Quarter: 2014Q4

REPORT INFORMATION
  Report Type: Spontaneous
  Country: US (occurrence: US)
  Receive Date: 20141015
  Receipt Date: 20141015
  Transmission Date: 20150528
  Serious: No
  Sender: FDA-Public Use
  Company Number: US-PFIZER INC-2014279162

PATIENT
  Age: 80 Year
  Sex: Male
  Weight: 54 kg

DRUGS (4)
  1. CLONOPIN [Concomitant]
     Active Substance: CLONAZEPAM
     Indication: STRESS
     Dosage: 0.5 MG, AS NEEDED
  2. NICOTROL [Suspect]
     Active Substance: NICOTINE
     Indication: SMOKING CESSATION THERAPY
     Dosage: 10 MG ONE PUFF AS NEEDED (10 MG ONE PUFF EVERY HOUR AS NEEDED FOR NICOTINE CRAVINGS)
     Route: 055
     Dates: start: 20141009
  3. CLONOPIN [Concomitant]
     Active Substance: CLONAZEPAM
     Indication: ANXIETY
  4. SPIRIVA [Concomitant]
     Active Substance: TIOTROPIUM BROMIDE MONOHYDRATE
     Dosage: ONCE DAILY

REACTIONS (9)
  - Drug dispensing error [Unknown]
  - Cough [Unknown]
  - Throat irritation [Unknown]
  - Anxiety [Recovering/Resolving]
  - Product quality issue [Unknown]
  - Abdominal discomfort [Not Recovered/Not Resolved]
  - Agitation [Unknown]
  - Stress [Recovering/Resolving]
  - Dysgeusia [Not Recovered/Not Resolved]

NARRATIVE: CASE EVENT DATE: 201410
